FAERS Safety Report 11823732 (Version 2)
Quarter: 2015Q4

REPORT INFORMATION
  Report Type: Spontaneous
  Country: GR (occurrence: GR)
  Receive Date: 20151210
  Receipt Date: 20151229
  Transmission Date: 20160305
  Serious: Yes (Other)
  Sender: FDA-Public Use
  Company Number: GR-BAYER-2015-484952

PATIENT
  Age: 36 Year
  Sex: Female

DRUGS (7)
  1. CLARITYNE [Suspect]
     Active Substance: LORATADINE
     Indication: URTICARIA
     Dosage: 1 DF, BID
     Route: 048
     Dates: start: 20140903, end: 20140903
  2. FILICINE [Concomitant]
  3. TARDYFERON [Concomitant]
     Active Substance: FERROUS SULFATE\FOLIC ACID
  4. CLARITYNE [Suspect]
     Active Substance: LORATADINE
     Indication: URTICARIA
     Dosage: 1 DF, QD
     Route: 048
     Dates: start: 20140902, end: 20140902
  5. SALOSPIR [Concomitant]
     Active Substance: ASPIRIN\CAFFEINE
  6. CLARITYNE [Suspect]
     Active Substance: LORATADINE
     Indication: URTICARIA
     Dosage: A TOTAL OF 7 TABLETS
     Route: 048
  7. GYNO-TARDYFERON [FERROUS SULFATE,FOLIC ACID] [Concomitant]

REACTIONS (9)
  - Placental insufficiency [None]
  - Caesarean section [None]
  - Pre-eclampsia [Recovered/Resolved]
  - Blood pressure increased [Recovered/Resolved]
  - Maternal exposure during pregnancy [None]
  - Oedema peripheral [Recovered/Resolved]
  - Product use issue [None]
  - Premature labour [None]
  - Blood albumin increased [Recovered/Resolved]

NARRATIVE: CASE EVENT DATE: 2014
